FAERS Safety Report 4418109-5 (Version None)
Quarter: 2004Q3

REPORT INFORMATION
  Report Type: 
  Country: None (occurrence: None)
  Receive Date: 20040805
  Receipt Date: 20040805
  Transmission Date: 20050211
  Serious: Yes (Death)
  Sender: FDA-Public Use
  Company Number: None

PATIENT
  Age: 68 Year
  Sex: Female
  Weight: 68.1 kg

DRUGS (2)
  1. IRINOTECAN 100 MG/M2 [Suspect]
     Indication: BREAST CANCER STAGE IV
     Dosage: 100MG/M2; IV; TWICE X 3 WKS
     Route: 042
     Dates: start: 20040203, end: 20040302
  2. CAPECITABINE 2000 MG /M2 [Suspect]
     Dosage: 2000 MG/M2; PO; 1-14 DAYS 3 WKS
     Route: 048
     Dates: start: 20040206, end: 20040308

REACTIONS (1)
  - MALIGNANT NEOPLASM PROGRESSION [None]
